FAERS Safety Report 5447151-0 (Version None)
Quarter: 2007Q3

REPORT INFORMATION
  Report Type: 
  Country: None (occurrence: None)
  Receive Date: 20070910
  Receipt Date: 20070830
  Transmission Date: 20080115
  Serious: Yes (Other)
  Sender: FDA-Public Use
  Company Number: PHEH2007US11781

PATIENT
  Age: 19 Year
  Sex: Male

DRUGS (1)
  1. EXJADE [Suspect]
     Dosage: 2 DF, UNK
     Route: 048

REACTIONS (1)
  - SYNCOPE [None]
